FAERS Safety Report 5246992-2 (Version None)
Quarter: 2007Q1

REPORT INFORMATION
  Report Type: 
  Country: None (occurrence: None)
  Receive Date: 20070226
  Receipt Date: 20070220
  Transmission Date: 20070707
  Serious: Yes (Hospitalization)
  Sender: FDA-Public Use
  Company Number: JP-JPN-A200700186

PATIENT
  Age: 71 Year
  Sex: Male
  Weight: 60 kg

DRUGS (11)
  1. VALTREX [Suspect]
     Indication: HERPES ZOSTER
     Dosage: 1000MG THREE TIMES PER DAY
     Route: 048
     Dates: start: 20070115, end: 20070117
  2. ARASENA-A [Suspect]
     Indication: HERPES ZOSTER
     Dosage: 300MG PER DAY
     Route: 042
     Dates: start: 20070118, end: 20070119
  3. PARIET [Concomitant]
     Indication: HERPES ZOSTER
     Dosage: 10MG PER DAY
     Route: 048
     Dates: start: 20070115
  4. KADIAN [Concomitant]
     Indication: PAIN
     Dosage: 30MG PER DAY
     Route: 048
     Dates: start: 20061215
  5. HOKUNALIN [Concomitant]
     Indication: EMPHYSEMA
     Dosage: 2MG PER DAY
     Route: 062
     Dates: start: 20070115
  6. GLUCOBAY [Concomitant]
     Indication: DIABETES MELLITUS
     Route: 048
     Dates: start: 20061101
  7. LIPIDIL [Concomitant]
     Dosage: 200MG PER DAY
     Route: 048
     Dates: start: 20061101
  8. MAGMITT [Concomitant]
     Indication: CONSTIPATION
     Dosage: 660MG PER DAY
     Route: 048
     Dates: start: 20061101
  9. SELBEX [Concomitant]
     Indication: GASTRITIS
     Dosage: 150MG PER DAY
     Route: 048
     Dates: start: 20061101
  10. RINDERON [Concomitant]
     Indication: PAIN
     Dosage: 2MG PER DAY
     Route: 048
     Dates: start: 20061101
  11. VOLTAREN [Concomitant]
     Indication: PAIN
     Dosage: 75MG PER DAY
     Route: 048
     Dates: start: 20061101

REACTIONS (3)
  - DEPRESSED LEVEL OF CONSCIOUSNESS [None]
  - DISORIENTATION [None]
  - PSYCHIATRIC SYMPTOM [None]
